FAERS Safety Report 7336783-0 (Version None)
Quarter: 2011Q1

REPORT INFORMATION
  Report Type: 
  Country: None (occurrence: None)
  Receive Date: 20110308
  Receipt Date: 20110224
  Transmission Date: 20110831
  Serious: No
  Sender: FDA-Public Use
  Company Number: US-BIOGENIDEC-2011BI007366

PATIENT
  Sex: Female

DRUGS (3)
  1. GLYBURIDE [Concomitant]
     Indication: DIABETES MELLITUS
  2. TYSABRI [Suspect]
     Indication: MULTIPLE SCLEROSIS
     Route: 042
     Dates: start: 20061201
  3. LAMICTAL [Concomitant]
     Indication: BIPOLAR I DISORDER

REACTIONS (3)
  - BLOOD GLUCOSE DECREASED [None]
  - FEELING ABNORMAL [None]
  - MEMORY IMPAIRMENT [None]
